FAERS Safety Report 4336088-6 (Version None)
Quarter: 2004Q2

REPORT INFORMATION
  Report Type: 
  Country: None (occurrence: None)
  Receive Date: 20040406
  Receipt Date: 20040331
  Transmission Date: 20050107
  Serious: Yes (Death, Life-Threatening, Hospitalization)
  Sender: FDA-Public Use
  Company Number: CAPT20040002

PATIENT
  Age: 65 Year
  Sex: Male

DRUGS (2)
  1. CAPTOPRIL [Suspect]
     Dosage: PO
     Route: 048
     Dates: end: 20030101
  2. BISOPROLOL [Suspect]
     Dates: end: 20030101

REACTIONS (11)
  - ARTHRALGIA [None]
  - CARDIAC FAILURE [None]
  - DRUG RASH WITH EOSINOPHILIA AND SYSTEMIC SYMPTOMS [None]
  - FACE OEDEMA [None]
  - GENERAL PHYSICAL HEALTH DETERIORATION [None]
  - HEPATITIS [None]
  - HUMAN HERPESVIRUS 6 INFECTION [None]
  - MYALGIA [None]
  - PRURITUS [None]
  - PYREXIA [None]
  - RENAL FAILURE ACUTE [None]
